FAERS Safety Report 5929900-8 (Version None)
Quarter: 2008Q4

REPORT INFORMATION
  Report Type: 
  Country: None (occurrence: None)
  Receive Date: 20081024
  Receipt Date: 20081010
  Transmission Date: 20090506
  Serious: Yes (Hospitalization, Other)
  Sender: FDA-Public Use
  Company Number: SE-GENENTECH-242830

PATIENT
  Sex: Male

DRUGS (2)
  1. LUCENTIS [Suspect]
     Indication: MACULAR DEGENERATION
     Dosage: 0.05 ML, UNK
     Route: 031
     Dates: start: 20070206
  2. ZESTRIL [Suspect]
     Indication: HYPERTENSION
     Dosage: 10 MG, BID

REACTIONS (2)
  - MALAISE [None]
  - TRANSIENT ISCHAEMIC ATTACK [None]
